FAERS Safety Report 8052735 (Version 4)
Quarter: 2013Q1

REPORT INFORMATION
  Report Type: Spontaneous
  Country: DE (occurrence: DE)
  Receive Date: 20110725
  Receipt Date: 20130226
  Transmission Date: 20140127
  Serious: Yes (Other)
  Sender: FDA-Public Use
  Company Number: DE-UCBSA-017699

PATIENT
  Age: 66 Year
  Sex: Female
  Weight: 60 kg

DRUGS (15)
  1. VIMPAT [Suspect]
     Indication: ENCEPHALITIS
     Dosage: PEG ADMINISTRATION
     Dates: start: 201004, end: 20110425
  2. VIMPAT [Suspect]
     Indication: ENCEPHALITIS
     Dosage: 100MG 09:45 (IN THE MORNING) AND 150MG 21:45 (IN THE EVENING)
     Route: 048
     Dates: start: 20110426
  3. VIMPAT [Suspect]
     Indication: ENCEPHALITIS
     Dates: start: 20110615
  4. VIMPAT [Suspect]
     Indication: ENCEPHALITIS
  5. KEPPRA [Suspect]
     Indication: ENCEPHALITIS
     Dosage: PEG ADMINISTRATION
     Dates: start: 201001
  6. KEPPRA [Suspect]
     Indication: ENCEPHALITIS
     Dosage: PEG ADMINISTRATION
  7. KEPPRA [Suspect]
     Indication: ENCEPHALITIS
     Dates: start: 20110426
  8. KEPPRA [Suspect]
     Indication: ENCEPHALITIS
     Dates: start: 20110615
  9. KEPPRA [Suspect]
     Indication: ENCEPHALITIS
  10. BELOC ZOK [Concomitant]
     Indication: BLOOD PRESSURE
     Dosage: 47.5 DAILY, PEG ADMINISTRATION
  11. TOREM [Concomitant]
     Indication: COLLATERAL CIRCULATION
     Dosage: PEG ADMNISTRATION
  12. NEXIUM [Concomitant]
     Indication: PROPHYLAXIS
     Dosage: SINGLE DOSE 20X2, PEG ADMINISTRATION
  13. SPIRONOLACTON [Concomitant]
     Indication: COLLATERAL CIRCULATION
     Dosage: PEG ADMINISTRATION
  14. EUNERPAN [Concomitant]
     Indication: PAIN
     Dosage: PEG ADMINISTRATION
     Dates: end: 201005
  15. RIVOTRIL [Concomitant]
     Indication: ENCEPHALITIS
     Dosage: PEG ADMINISTRATION

REACTIONS (14)
  - Status epilepticus [Unknown]
  - Convulsion [Unknown]
  - Psychogenic seizure [Unknown]
  - Aggression [Recovered/Resolved]
  - Restlessness [Not Recovered/Not Resolved]
  - Confusional state [Recovered/Resolved]
  - Food aversion [Unknown]
  - Somnolence [Unknown]
  - Eye pain [Not Recovered/Not Resolved]
  - Nasal discomfort [Not Recovered/Not Resolved]
  - Sneezing [Recovered/Resolved]
  - Nasal inflammation [Not Recovered/Not Resolved]
  - Sleep disorder [Recovered/Resolved]
  - Gastrointestinal disorder [Recovered/Resolved]
